FAERS Safety Report 5019115-2 (Version None)
Quarter: 2006Q2

REPORT INFORMATION
  Report Type: 
  Country: None (occurrence: None)
  Receive Date: 20060531
  Receipt Date: 20060521
  Transmission Date: 20061013
  Serious: Yes (Other)
  Sender: FDA-Public Use
  Company Number: 2006066873

PATIENT
  Age: 83 Year
  Sex: Male
  Weight: 168 kg

DRUGS (9)
  1. TIKOSYN [Suspect]
     Indication: ILL-DEFINED DISORDER
     Dosage: SEE IMAGE
     Route: 048
     Dates: start: 20060427, end: 20060430
  2. TIKOSYN [Suspect]
     Indication: ILL-DEFINED DISORDER
     Dosage: SEE IMAGE
     Route: 048
     Dates: start: 20060501, end: 20060519
  3. ATORVASTATIN CALCIUM [Suspect]
     Indication: ILL-DEFINED DISORDER
     Dates: end: 20060501
  4. SINEMET [Suspect]
     Indication: ILL-DEFINED DISORDER
  5. DOCUSATE (DOCUSATE) [Suspect]
     Indication: ILL-DEFINED DISORDER
  6. DIGOXIN [Suspect]
     Indication: ILL-DEFINED DISORDER
     Dosage: INTRAVENOUS
     Route: 042
  7. MEXILETINE HCL [Suspect]
     Indication: ILL-DEFINED DISORDER
     Dosage: INTRAVENOUS
     Route: 042
  8. LEVOTHYROXINE SODIUM [Suspect]
     Indication: ILL-DEFINED DISORDER
     Dosage: INTRAVENOUS
     Route: 042
  9. RANITIDINE [Suspect]
     Indication: ILL-DEFINED DISORDER

REACTIONS (4)
  - ENTEROVESICAL FISTULA [None]
  - ORAL INTAKE REDUCED [None]
  - RENAL FAILURE [None]
  - RESPIRATORY DISTRESS [None]
